FAERS Safety Report 5609504-7 (Version None)
Quarter: 2008Q1

REPORT INFORMATION
  Report Type: 
  Country: None (occurrence: None)
  Receive Date: 20080131
  Receipt Date: 20080123
  Transmission Date: 20080703
  Serious: Yes (Other)
  Sender: FDA-Public Use
  Company Number: NO-PFIZER INC-2007086456

PATIENT
  Age: 65 Year
  Sex: Male

DRUGS (2)
  1. LIPITOR [Suspect]
     Route: 048
  2. SALICYLIC ACID [Concomitant]
     Route: 048

REACTIONS (2)
  - AMNESIA [None]
  - EPILEPSY [None]
